FAERS Safety Report 25079912 (Version 1)
Quarter: 2025Q1

REPORT INFORMATION
  Report Type: Spontaneous
  Country: US (occurrence: US)
  Receive Date: 20250314
  Receipt Date: 20250314
  Transmission Date: 20250408
  Serious: No
  Sender: YILING PHARMACEUTICAL LTD
  Company Number: US-YILING-2025YPSPO0005

PATIENT
  Sex: Female

DRUGS (1)
  1. ANASTROZOLE [Suspect]
     Active Substance: ANASTROZOLE
     Indication: Blood oestrogen increased
     Dosage: EVERYDAY
     Route: 048

REACTIONS (7)
  - Hot flush [Unknown]
  - Nausea [Unknown]
  - Asthenia [Unknown]
  - Arthritis [Unknown]
  - Pain [Unknown]
  - Product quality issue [Unknown]
  - Drug ineffective [Unknown]
